FAERS Safety Report 13158066 (Version 1)
Quarter: 2017Q1

REPORT INFORMATION
  Report Type: Spontaneous
  Country: US (occurrence: US)
  Receive Date: 20170124
  Receipt Date: 20170124
  Transmission Date: 20170428
  Serious: Yes (Other)
  Sender: FDA-Public Use
  Company Number: None

PATIENT
  Age: 11 Year
  Sex: Female
  Weight: 54 kg

DRUGS (2)
  1. ARIPIPRAZOLE. [Suspect]
     Active Substance: ARIPIPRAZOLE
     Indication: BIPOLAR DISORDER
     Dates: start: 20170119, end: 20170122
  2. ARIPIPRAZOLE. [Suspect]
     Active Substance: ARIPIPRAZOLE
     Indication: DEPRESSION
     Dates: start: 20170119, end: 20170122

REACTIONS (6)
  - Abnormal behaviour [None]
  - Product substitution issue [None]
  - Condition aggravated [None]
  - Irritability [None]
  - Poor quality sleep [None]
  - Aggression [None]

NARRATIVE: CASE EVENT DATE: 20170120
